FAERS Safety Report 10388845 (Version 1)
Quarter: 2014Q1

REPORT INFORMATION
  Report Type: Spontaneous
  Country: US (occurrence: None)
  Receive Date: 20140306
  Receipt Date: 20140306
  Transmission Date: 20141002
  Serious: Yes (Hospitalization)
  Sender: FDA-Public Use
  Company Number: 163-21880-13100394

PATIENT
  Age: 53 Year
  Sex: Female

DRUGS (1)
  1. REVLIMID (LENALIDOMIDE)(CAPSULES) [Suspect]
     Indication: PLASMA CELL MYELOMA
     Route: 048
     Dates: start: 201301

REACTIONS (4)
  - Pneumonia [None]
  - Platelet count decreased [None]
  - Neutrophil count decreased [None]
  - White blood cell count decreased [None]
